FAERS Safety Report 23994462 (Version 2)
Quarter: 2024Q3

REPORT INFORMATION
  Report Type: Report from Study
  Country: IN (occurrence: IN)
  Receive Date: 20240620
  Receipt Date: 20240807
  Transmission Date: 20241017
  Serious: Yes (Other)
  Sender: MYLAN
  Company Number: IN-MYLANLABS-2024M1055514

PATIENT
  Age: 32 Year
  Sex: Male
  Weight: 60 kg

DRUGS (4)
  1. PACLITAXEL [Suspect]
     Active Substance: PACLITAXEL
     Indication: Adenocarcinoma of colon
     Dosage: 20 MILLIGRAM/SQ. METER, CYCLE (INFUSIONS; RECEIVED 4 CYCLES BEFORE LACK OF EFFICACY WAS NOTED)
     Route: 033
     Dates: start: 20210624, end: 20210708
  2. PACLITAXEL [Suspect]
     Active Substance: PACLITAXEL
     Indication: Metastases to peritoneum
  3. IRINOTECAN [Suspect]
     Active Substance: IRINOTECAN
     Indication: Adenocarcinoma of colon
     Dosage: UNK, CYCLE (RECEIVED 4 CYCLES BEFORE LACK OF EFFICACY WAS NOTED)
     Route: 042
  4. IRINOTECAN [Suspect]
     Active Substance: IRINOTECAN
     Indication: Metastases to peritoneum

REACTIONS (3)
  - Drug ineffective [Unknown]
  - Off label use [Unknown]
  - Disease progression [Unknown]
